FAERS Safety Report 8756119 (Version 2)
Quarter: 2012Q4

REPORT INFORMATION
  Report Type: 
  Country: US (occurrence: US)
  Receive Date: 20120828
  Receipt Date: 20120911
  Transmission Date: 20130627
  Serious: Yes (Other)
  Sender: FDA-Public Use
  Company Number: US-PFIZER INC-2012207280

PATIENT
  Age: 39 Year
  Sex: Female
  Weight: 74.83 kg

DRUGS (3)
  1. PRISTIQ [Suspect]
     Indication: AFFECTIVE DISORDER
     Dosage: 60 mg, daily
     Dates: start: 201208, end: 201208
  2. PRISTIQ [Suspect]
     Indication: BIPOLAR DISORDER
  3. KLONOPIN [Concomitant]
     Indication: ANXIETY
     Dosage: 1 mg, 3x/day

REACTIONS (6)
  - Hypertension [Unknown]
  - Palpitations [Unknown]
  - Blood potassium decreased [Unknown]
  - Chest discomfort [Unknown]
  - Malaise [Unknown]
  - Drug hypersensitivity [Unknown]
